FAERS Safety Report 6104413-1 (Version None)
Quarter: 2009Q1

REPORT INFORMATION
  Report Type: 
  Country: None (occurrence: None)
  Receive Date: 20090305
  Receipt Date: 20080701
  Transmission Date: 20090719
  Serious: Yes (Hospitalization, Other)
  Sender: FDA-Public Use
  Company Number: US-PFIZER INC-2008055695

PATIENT
  Sex: Male

DRUGS (1)
  1. GLIBENCLAMIDE [Suspect]
     Dosage: UNK
     Dates: start: 20030101

REACTIONS (12)
  - BLOOD GLUCOSE INCREASED [None]
  - CHEST PAIN [None]
  - DECREASED APPETITE [None]
  - DIZZINESS [None]
  - HYPOTENSION [None]
  - MALAISE [None]
  - MOBILITY DECREASED [None]
  - RASH [None]
  - SKIN LESION [None]
  - SURGERY [None]
  - SYNCOPE [None]
  - WEIGHT DECREASED [None]
